FAERS Safety Report 10990175 (Version 5)
Quarter: 2017Q1

REPORT INFORMATION
  Report Type: Spontaneous
  Country: US (occurrence: US)
  Receive Date: 20150406
  Receipt Date: 20170227
  Transmission Date: 20170428
  Serious: Yes (Other)
  Sender: FDA-Public Use
  Company Number: US-JNJFOC-20150401993

PATIENT
  Sex: Male

DRUGS (4)
  1. HALDOL [Suspect]
     Active Substance: HALOPERIDOL
     Indication: PRODUCT USED FOR UNKNOWN INDICATION
     Route: 030
  2. RISPERDAL [Suspect]
     Active Substance: RISPERIDONE
     Indication: SCHIZOPHRENIA
     Route: 048
     Dates: start: 20061222, end: 20090220
  3. RISPERDAL [Suspect]
     Active Substance: RISPERIDONE
     Indication: SCHIZOPHRENIA
     Dosage: 1MG, 3MG
     Route: 048
     Dates: start: 20061211, end: 20070110
  4. RISPERIDONE. [Suspect]
     Active Substance: RISPERIDONE
     Indication: SCHIZOPHRENIA
     Route: 048
     Dates: start: 20090220, end: 20140730

REACTIONS (7)
  - Dizziness postural [Unknown]
  - Obesity [Unknown]
  - Gynaecomastia [Unknown]
  - Somnolence [Unknown]
  - Drooling [Unknown]
  - Hyperprolactinaemia [Unknown]
  - Headache [Unknown]

NARRATIVE: CASE EVENT DATE: 2007
